FAERS Safety Report 7193631-X (Version None)
Quarter: 2010Q4

REPORT INFORMATION
  Report Type: 
  Country: None (occurrence: None)
  Receive Date: 20101223
  Receipt Date: 20101217
  Transmission Date: 20110411
  Serious: Yes (Hospitalization)
  Sender: FDA-Public Use
  Company Number: US-NOVOPROD-320329

PATIENT
  Sex: Male
  Weight: 94 kg

DRUGS (22)
  1. NOVOLOG [Suspect]
     Indication: DIABETES MELLITUS
     Dosage: UNK
     Dates: start: 20090326
  2. NPLATE [Suspect]
     Indication: IDIOPATHIC THROMBOCYTOPENIC PURPURA
     Dosage: 1 MCG/KG, QWK
     Route: 058
     Dates: start: 20090513, end: 20090526
  3. NPLATE [Suspect]
     Dosage: 2 MCG/KG, QWK
     Route: 058
     Dates: start: 20090527
  4. LISINOPRIL [Concomitant]
     Indication: PRODUCT USED FOR UNKNOWN INDICATION
     Dosage: UNK
     Route: 048
     Dates: start: 20090326
  5. LANTUS [Concomitant]
     Indication: DIABETES MELLITUS
     Dosage: UNK
     Dates: start: 20090326
  6. DEXAMETHASONE                      /00016002/ [Concomitant]
     Indication: PRODUCT USED FOR UNKNOWN INDICATION
     Dosage: UNK
     Dates: start: 20090508, end: 20090514
  7. DEXAMETHASONE                      /00016002/ [Concomitant]
     Dosage: UNK
     Dates: start: 20090517, end: 20090519
  8. DEXAMETHASONE                      /00016002/ [Concomitant]
     Dosage: UNK
     Dates: start: 20090522, end: 20090527
  9. DEXAMETHASONE                      /00016002/ [Concomitant]
     Dosage: UNK
     Dates: start: 20090527, end: 20090529
  10. DEXAMETHASONE                      /00016002/ [Concomitant]
     Dosage: UNK
     Dates: start: 20090530, end: 20090530
  11. DEXAMETHASONE                      /00016002/ [Concomitant]
     Dosage: UNK
     Dates: start: 20090531, end: 20090531
  12. DEXAMETHASONE                      /00016002/ [Concomitant]
     Dosage: UNK
     Dates: start: 20090602, end: 20090610
  13. DEXAMETHASONE                      /00016002/ [Concomitant]
     Dosage: UNK
     Dates: start: 20090611
  14. TRIMETHOPRIM + SULFAMETHOXAZOLE [Concomitant]
     Indication: PRODUCT USED FOR UNKNOWN INDICATION
     Dosage: UNK
  15. AMLODIPINE [Concomitant]
     Indication: PRODUCT USED FOR UNKNOWN INDICATION
     Dosage: UNK
     Dates: start: 20090326
  16. PANTOPRAZOLE [Concomitant]
     Indication: PRODUCT USED FOR UNKNOWN INDICATION
     Dosage: UNK
     Dates: start: 20090715
  17. MIRALAX [Concomitant]
     Indication: PRODUCT USED FOR UNKNOWN INDICATION
  18. SENNA                              /00571901/ [Concomitant]
     Indication: PRODUCT USED FOR UNKNOWN INDICATION
  19. METHYLPREDNISOLONE SODIUM SUCCINATE [Concomitant]
     Indication: PRODUCT USED FOR UNKNOWN INDICATION
     Dosage: UNK
     Dates: start: 20090430, end: 20090508
  20. TEMAZEPAM [Concomitant]
     Indication: PRODUCT USED FOR UNKNOWN INDICATION
     Dosage: UNK
     Dates: start: 20090331
  21. NYSTATIN [Concomitant]
     Indication: PRODUCT USED FOR UNKNOWN INDICATION
  22. RITUXIMAB [Concomitant]
     Indication: IDIOPATHIC THROMBOCYTOPENIC PURPURA
     Dosage: UNK
     Dates: start: 20090319, end: 20090604

REACTIONS (3)
  - BLOOD GLUCOSE ABNORMAL [None]
  - LIVER FUNCTION TEST ABNORMAL [None]
  - WEIGHT DECREASED [None]
